FAERS Safety Report 5062409-5 (Version None)
Quarter: 2006Q3

REPORT INFORMATION
  Report Type: 
  Country: None (occurrence: None)
  Receive Date: 20060721
  Receipt Date: 20060713
  Transmission Date: 20061208
  Serious: Yes (Life-Threatening)
  Sender: FDA-Public Use
  Company Number: 2006087325

PATIENT
  Age: 70 Year
  Sex: Male
  Weight: 87 kg

DRUGS (4)
  1. FRAGMIN [Suspect]
     Indication: HIP ARTHROPLASTY
     Dosage: 5000 I.U. (DAILY), SUBCUTANEOUS
     Route: 058
     Dates: start: 20060704
  2. INDOMETHACIN [Concomitant]
  3. AMLODIPINE [Concomitant]
  4. OXYCONTIN [Concomitant]

REACTIONS (1)
  - PULMONARY EMBOLISM [None]
